FAERS Safety Report 6373469-3 (Version None)
Quarter: 2009Q3

REPORT INFORMATION
  Report Type: 
  Country: None (occurrence: None)
  Receive Date: 20090924
  Receipt Date: 20090310
  Transmission Date: 20100115
  Serious: No
  Sender: FDA-Public Use
  Company Number: US-ASTRAZENECA-2009UW06341

PATIENT
  Age: 54 Year
  Sex: Male
  Weight: 102.1 kg

DRUGS (1)
  1. SEROQUEL [Suspect]
     Indication: INSOMNIA
     Route: 048
     Dates: start: 20090306, end: 20090307

REACTIONS (4)
  - EYE SWELLING [None]
  - NASAL CONGESTION [None]
  - SLEEP DISORDER [None]
  - SWELLING FACE [None]
